FAERS Safety Report 10629041 (Version 2)
Quarter: 2014Q4

REPORT INFORMATION
  Report Type: Spontaneous
  Country: US (occurrence: US)
  Receive Date: 20141205
  Receipt Date: 20141205
  Transmission Date: 20150529
  Serious: No
  Sender: FDA-Public Use
  Company Number: US-BRISTOL-MYERS SQUIBB COMPANY-21219050

PATIENT
  Age: 70 Year
  Sex: Female
  Weight: 136.05 kg

DRUGS (5)
  1. TRAMADOL [Concomitant]
     Active Substance: TRAMADOL
  2. SERTRALINE [Concomitant]
     Active Substance: SERTRALINE HYDROCHLORIDE
  3. ABILIFY [Suspect]
     Active Substance: ARIPIPRAZOLE
     Dosage: STOPPED:MAY-2014 AND RESTARTED:JUL-2014
     Route: 048
     Dates: start: 201402
  4. TRAZODONE HYDROCHLORIDE. [Concomitant]
     Active Substance: TRAZODONE HYDROCHLORIDE
  5. VESICARE [Concomitant]
     Active Substance: SOLIFENACIN SUCCINATE

REACTIONS (7)
  - Depression [Not Recovered/Not Resolved]
  - Tremor [Unknown]
  - Increased appetite [Unknown]
  - Musculoskeletal stiffness [Not Recovered/Not Resolved]
  - Peripheral swelling [Not Recovered/Not Resolved]
  - Contusion [Not Recovered/Not Resolved]
  - Weight increased [Unknown]

NARRATIVE: CASE EVENT DATE: 201405
